FAERS Safety Report 5881391-1 (Version None)
Quarter: 2008Q3

REPORT INFORMATION
  Report Type: 
  Country: None (occurrence: None)
  Receive Date: 20080912
  Receipt Date: 20080629
  Transmission Date: 20090109
  Serious: No
  Sender: FDA-Public Use
  Company Number: US-ABBOTT-08P-163-0460083-00

PATIENT
  Sex: Female

DRUGS (2)
  1. HUMIRA [Suspect]
     Indication: RHEUMATOID ARTHRITIS
     Route: 058
     Dates: start: 20080510
  2. CIPROFLOXACIN [Suspect]
     Indication: CYSTITIS

REACTIONS (5)
  - CYSTITIS [None]
  - DEPRESSION [None]
  - DIZZINESS [None]
  - MALAISE [None]
  - NAUSEA [None]
